FAERS Safety Report 5418143-2 (Version None)
Quarter: 2007Q3

REPORT INFORMATION
  Report Type: 
  Country: None (occurrence: None)
  Receive Date: 20070817
  Receipt Date: 20070803
  Transmission Date: 20080115
  Serious: Yes (Other)
  Sender: FDA-Public Use
  Company Number: US-ELI_LILLY_AND_COMPANY-US200708000938

PATIENT
  Age: 48 Year
  Sex: Female

DRUGS (2)
  1. STRATTERA [Suspect]
     Indication: ATTENTION DEFICIT/HYPERACTIVITY DISORDER
     Dosage: 60 MG, DAILY (1/D)
     Route: 048
     Dates: start: 20070718, end: 20070803
  2. LAMICTAL [Concomitant]

REACTIONS (5)
  - AGGRESSION [None]
  - HAEMATURIA [None]
  - HOMICIDAL IDEATION [None]
  - RENAL PAIN [None]
  - URINE COLOUR ABNORMAL [None]
